FAERS Safety Report 7073049-0 (Version None)
Quarter: 2010Q4

REPORT INFORMATION
  Report Type: 
  Country: None (occurrence: None)
  Receive Date: 20101029
  Receipt Date: 20100415
  Transmission Date: 20110411
  Serious: No
  Sender: FDA-Public Use
  Company Number: A0855247A

PATIENT
  Age: 79 Year
  Sex: Male

DRUGS (19)
  1. ADVAIR DISKUS 100/50 [Suspect]
     Indication: ASTHMA
     Dosage: 1PUFF TWICE PER DAY
     Route: 055
     Dates: start: 20100301
  2. SPIRIVA [Concomitant]
  3. ASPIRIN [Concomitant]
  4. QUINAPRIL [Concomitant]
  5. LEVOTHYROXINE SODIUM [Concomitant]
  6. MULTI-VITAMIN [Concomitant]
  7. CALCIUM + D [Concomitant]
  8. DEPAKOTE [Concomitant]
  9. VITAMIN D3 [Concomitant]
  10. EFFEXOR XR [Concomitant]
  11. FLORASTOR [Concomitant]
  12. ACETAMINOPHEN [Concomitant]
  13. LOVASTATIN [Concomitant]
  14. OMEPRAZOLE [Concomitant]
  15. ARICEPT [Concomitant]
  16. AMBIEN [Concomitant]
  17. LORTAB [Concomitant]
  18. DARVOCET [Concomitant]
  19. MIRALAX [Concomitant]

REACTIONS (1)
  - DRY MOUTH [None]
